FAERS Safety Report 13812650 (Version 1)
Quarter: 2017Q3

REPORT INFORMATION
  Report Type: Spontaneous
  Country: GB (occurrence: GB)
  Receive Date: 20170729
  Receipt Date: 20170729
  Transmission Date: 20171127
  Serious: Yes (Other)
  Sender: FDA-Public Use
  Company Number: GB-MYLANLABS-2017M1043745

PATIENT

DRUGS (2)
  1. ZOPICLONE [Concomitant]
     Active Substance: ZOPICLONE
  2. FLUOXETINE [Suspect]
     Active Substance: FLUOXETINE HYDROCHLORIDE
     Indication: DEPRESSION
     Route: 048
     Dates: start: 20170613, end: 20170627

REACTIONS (3)
  - Feeling abnormal [Unknown]
  - Mental status changes [Recovering/Resolving]
  - Emotional disorder [Unknown]

NARRATIVE: CASE EVENT DATE: 20170621
